FAERS Safety Report 6592775-0 (Version None)
Quarter: 2010Q1

REPORT INFORMATION
  Report Type: 
  Country: None (occurrence: None)
  Receive Date: 20100222
  Receipt Date: 20100216
  Transmission Date: 20100710
  Serious: Yes (Other)
  Sender: FDA-Public Use
  Company Number: US-RB-002989-10

PATIENT
  Age: 19 Year
  Sex: Female
  Weight: 56.25 kg

DRUGS (2)
  1. DELSYM CHILDREN'S COUGH SYRUP [Suspect]
     Dosage: TOOK 2 TEASPOONS
     Route: 048
     Dates: start: 20100212
  2. DELSYM CHILDREN'S COUGH SYRUP [Suspect]
     Indication: COUGH
     Dosage: TOOK 2 TEASPOONS
     Route: 048
     Dates: start: 20100212

REACTIONS (7)
  - DIZZINESS [None]
  - GASTROENTERITIS VIRAL [None]
  - HYPOAESTHESIA [None]
  - NAUSEA [None]
  - SENSATION OF HEAVINESS [None]
  - TUNNEL VISION [None]
  - VISION BLURRED [None]
